FAERS Safety Report 21648044 (Version 1)
Quarter: 2022Q4

REPORT INFORMATION
  Report Type: Spontaneous
  Country: FR (occurrence: FR)
  Receive Date: 20221128
  Receipt Date: 20221128
  Transmission Date: 20230113
  Serious: Yes (Hospitalization)
  Sender: FDA-Public Use
  Company Number: FR-ADDMEDICA-2022000099

PATIENT
  Age: 28 Year
  Sex: Male
  Weight: 71 kg

DRUGS (3)
  1. SIKLOS [Suspect]
     Active Substance: HYDROXYUREA
     Indication: Sickle cell disease
     Dosage: 1000 MG / 71 KG
     Route: 048
     Dates: start: 202001
  2. FOLIC ACID [Concomitant]
     Active Substance: FOLIC ACID
     Indication: Product used for unknown indication
     Route: 048
  3. CHOLECALCIFEROL [Concomitant]
     Active Substance: CHOLECALCIFEROL
     Indication: Product used for unknown indication
     Route: 048

REACTIONS (1)
  - Ischaemic stroke [Recovering/Resolving]

NARRATIVE: CASE EVENT DATE: 20220805
